FAERS Safety Report 9106318 (Version 1)
Quarter: 2013Q1

REPORT INFORMATION
  Report Type: Spontaneous
  Country: TH (occurrence: TH)
  Receive Date: 20130221
  Receipt Date: 20130221
  Transmission Date: 20140127
  Serious: Yes (Other)
  Sender: FDA-Public Use
  Company Number: TH-ROCHE-1193405

PATIENT
  Sex: Male

DRUGS (3)
  1. AVASTIN [Suspect]
     Indication: COLORECTAL CANCER
     Route: 041
  2. OXALIPLATIN [Suspect]
     Indication: COLORECTAL CANCER
     Route: 065
  3. XELODA [Concomitant]
     Indication: COLORECTAL CANCER
     Route: 065

REACTIONS (2)
  - Bronchospasm [Recovered/Resolved]
  - Hypertension [Recovering/Resolving]
